FAERS Safety Report 4263857-3 (Version None)
Quarter: 2004Q1

REPORT INFORMATION
  Report Type: 
  Country: None (occurrence: None)
  Receive Date: 20040106
  Receipt Date: 20031229
  Transmission Date: 20041129
  Serious: Yes (Hospitalization)
  Sender: FDA-Public Use
  Company Number: PHBS2003CH14507

PATIENT
  Age: 63 Year
  Sex: Male

DRUGS (12)
  1. TEGRETOL [Suspect]
     Indication: POST HERPETIC NEURALGIA
     Dosage: 200 MG/DAY
     Route: 065
     Dates: start: 19910101, end: 20031106
  2. ALLOPURINOL [Suspect]
     Dosage: 300 MG/DAY
     Route: 065
     Dates: end: 20031106
  3. SEROPRAM [Suspect]
     Indication: DEPRESSION
     Dosage: 20 MG/DAY
     Route: 065
     Dates: start: 20030930
  4. ISOPTIN TAB [Suspect]
     Indication: ANGINA PECTORIS
     Dosage: 120 MG/DAY
     Route: 065
     Dates: start: 20031022, end: 20031106
  5. DAFALGAN [Suspect]
     Indication: PAIN
     Dosage: 200 MG/DAY
     Route: 065
  6. SIMVASTATIN [Concomitant]
     Indication: HYPERCHOLESTEROLAEMIA
     Dosage: 40 MG/DAY
     Route: 065
  7. CARDIOASPIRIN [Concomitant]
     Indication: MYOCARDIAL ISCHAEMIA
     Dosage: 100 MG/DAY
     Route: 065
  8. MOLSIDOMINE [Concomitant]
     Indication: MYOCARDIAL ISCHAEMIA
     Dosage: 4 MG/DAY
     Route: 065
  9. XANAX [Concomitant]
     Indication: DEPRESSION
     Dosage: 0.25 MG/DAY
     Route: 065
     Dates: start: 20031105
  10. TENORMIN [Concomitant]
     Indication: MYOCARDIAL ISCHAEMIA
     Dosage: 100 MG/DAY
     Route: 065
  11. NYTROGLYCERINE [Concomitant]
     Dosage: 0.8 MG/DAY
     Route: 065
  12. PONSTAN [Concomitant]
     Route: 065

REACTIONS (6)
  - ANGINA UNSTABLE [None]
  - ANTINUCLEAR ANTIBODY POSITIVE [None]
  - APLASTIC ANAEMIA [None]
  - ASTHENIA [None]
  - CHEST PAIN [None]
  - PANCYTOPENIA [None]
